FAERS Safety Report 26064092 (Version 1)
Quarter: 2025Q4

REPORT INFORMATION
  Report Type: Spontaneous
  Country: US (occurrence: US)
  Receive Date: 20251119
  Receipt Date: 20251119
  Transmission Date: 20260117
  Serious: Yes (Other)
  Sender: BAYER HEALTHCARE LLC
  Company Number: US-BAYER-2025A150273

PATIENT
  Sex: Female

DRUGS (2)
  1. ACETAMINOPHEN\GUAIFENESIN [Suspect]
     Active Substance: ACETAMINOPHEN\GUAIFENESIN
     Indication: Cough
     Dosage: UNK
     Route: 048
     Dates: start: 20251110, end: 20251110
  2. ACETAMINOPHEN\GUAIFENESIN [Suspect]
     Active Substance: ACETAMINOPHEN\GUAIFENESIN
     Indication: Nasal congestion

REACTIONS (5)
  - Foreign body in throat [Recovered/Resolved]
  - Cyanosis [Recovered/Resolved]
  - Retching [Recovered/Resolved]
  - Obstructive airways disorder [None]
  - Dyspnoea [Recovering/Resolving]

NARRATIVE: CASE EVENT DATE: 20251110
